FAERS Safety Report 15318782 (Version 1)
Quarter: 2018Q3

REPORT INFORMATION
  Report Type: Spontaneous
  Country: US (occurrence: US)
  Receive Date: 20180818
  Receipt Date: 20180818
  Transmission Date: 20181010
  Serious: No
  Sender: FDA-Public Use
  Company Number: None

PATIENT
  Age: 79 Year
  Sex: Female

DRUGS (4)
  1. TRIAM [Concomitant]
     Active Substance: TRIAMCINOLONE
  2. ESBRIET [Suspect]
     Active Substance: PIRFENIDONE
     Route: 048
  3. FLUOCINONIDE. [Concomitant]
     Active Substance: FLUOCINONIDE
  4. ESCITALOPRAM [Concomitant]
     Active Substance: ESCITALOPRAM OXALATE

REACTIONS (3)
  - Paraesthesia [None]
  - Pruritus generalised [None]
  - Rash [None]

NARRATIVE: CASE EVENT DATE: 20180718
